FAERS Safety Report 15089383 (Version 1)
Quarter: 2018Q2

REPORT INFORMATION
  Report Type: Spontaneous
  Country: US (occurrence: US)
  Receive Date: 20180629
  Receipt Date: 20180629
  Transmission Date: 20180711
  Serious: No
  Sender: FDA-Public Use
  Company Number: US-TARO-2018TAR00226

PATIENT
  Age: 59 Year
  Sex: Male
  Weight: 99.77 kg

DRUGS (4)
  1. METRONIDAZOLE GEL USP, 1% [Suspect]
     Active Substance: METRONIDAZOLE
     Indication: MENIERE^S DISEASE
     Dosage: ^THIN LAYER,^ AS NEEDED MULTIPLE TIMES A DAY
     Route: 061
     Dates: start: 201802
  2. UNSPECIFIED IMMUNOTHERAPY [Concomitant]
     Dosage: UNK
     Route: 060
     Dates: start: 2014
  3. METRONIDAZOLE GEL USP, 1% [Suspect]
     Active Substance: METRONIDAZOLE
     Indication: SKIN DISORDER
     Dosage: ^THIN LAYER,^ AS NEEDED MULTIPLE TIMES A DAY
     Route: 061
     Dates: start: 201801, end: 201802
  4. METRONIDAZOLE GEL USP, 1% [Suspect]
     Active Substance: METRONIDAZOLE
     Dosage: ^THIN LAYER,^ AS NEEDED
     Route: 061

REACTIONS (4)
  - Product quality issue [Recovered/Resolved]
  - Expired product administered [Recovered/Resolved]
  - Drug ineffective for unapproved indication [Recovered/Resolved]
  - Inappropriate schedule of drug administration [Not Recovered/Not Resolved]

NARRATIVE: CASE EVENT DATE: 201711
